FAERS Safety Report 22657374 (Version 1)
Quarter: 2023Q2

REPORT INFORMATION
  Report Type: Spontaneous
  Country: US (occurrence: US)
  Receive Date: 20230630
  Receipt Date: 20230630
  Transmission Date: 20230722
  Serious: No
  Sender: FDA-Public Use
  Company Number: US-LEO Pharma-360189

PATIENT
  Sex: Female

DRUGS (1)
  1. ADBRY [Suspect]
     Active Substance: TRALOKINUMAB-LDRM
     Indication: Rhinitis allergic
     Dosage: 300 MG EVERY OTHER WEEK SUBCUTANEOUSLY
     Route: 058
     Dates: start: 202304

REACTIONS (4)
  - Injection site warmth [Recovering/Resolving]
  - Injection site oedema [Recovering/Resolving]
  - Product use in unapproved indication [Unknown]
  - Injection site erythema [Recovering/Resolving]
